FAERS Safety Report 4908992-9 (Version None)
Quarter: 2006Q1

REPORT INFORMATION
  Report Type: 
  Country: None (occurrence: None)
  Receive Date: 20060210
  Receipt Date: 20060210
  Transmission Date: 20060701
  Serious: Yes (Life-Threatening, Hospitalization)
  Sender: FDA-Public Use
  Company Number: None

PATIENT
  Age: 72 Year
  Sex: Male
  Weight: 104.5 kg

DRUGS (5)
  1. CALCIUM CHLORIDE [Suspect]
     Indication: HYPERKALAEMIA
     Dosage: SEE IMAGE
     Route: 040
     Dates: start: 20060208, end: 20060208
  2. CALCIUM CHLORIDE [Suspect]
     Indication: HYPOCALCAEMIA
     Dosage: SEE IMAGE
     Route: 040
     Dates: start: 20060208, end: 20060208
  3. LACTATED RINGER'S [Concomitant]
  4. REGULAR INSULIN [Concomitant]
  5. MAGNESIUM SULFATE [Concomitant]

REACTIONS (1)
  - CARDIAC ARREST [None]
